FAERS Safety Report 5026329-4 (Version None)
Quarter: 2006Q2

REPORT INFORMATION
  Report Type: 
  Country: None (occurrence: None)
  Receive Date: 20060608
  Receipt Date: 20060531
  Transmission Date: 20061013
  Serious: Yes (Death, Other)
  Sender: FDA-Public Use
  Company Number: AT200605001149

PATIENT
  Age: 62 Year
  Sex: Male

DRUGS (8)
  1. ZYPREXA [Suspect]
     Indication: ALCOHOL WITHDRAWAL SYNDROME
     Dosage: 5 MG, 2/D, ORAL; 5 MG, 3/D, ORAL
     Route: 048
     Dates: start: 20060426, end: 20060427
  2. ZYPREXA [Suspect]
     Indication: ALCOHOL WITHDRAWAL SYNDROME
     Dosage: 5 MG, 2/D, ORAL; 5 MG, 3/D, ORAL
     Route: 048
     Dates: start: 20060427, end: 20060427
  3. FOLAN           (FOLIC ACID) [Concomitant]
  4. NEUROBION FORTE                  (CYANOCOBALAMIN, PYRIDOXINE SATE CALC [Concomitant]
  5. PANTOPRAZOLE SODIUM [Concomitant]
  6. KANAKION         (PHYTOMENADONE) [Concomitant]
  7. ANXIOLIT    (OXAZEPAM) [Concomitant]
  8. TRESLEEN     (SERTRALINE) [Concomitant]

REACTIONS (7)
  - ALCOHOL WITHDRAWAL SYNDROME [None]
  - DYSPNOEA [None]
  - HALLUCINATION [None]
  - ORTHOSTATIC HYPOTENSION [None]
  - PLATELET COUNT DECREASED [None]
  - PLATELET DISORDER [None]
  - SOMNOLENCE [None]
